FAERS Safety Report 6923487-9 (Version None)
Quarter: 2010Q3

REPORT INFORMATION
  Report Type: 
  Country: None (occurrence: None)
  Receive Date: 20100813
  Receipt Date: 20100804
  Transmission Date: 20110219
  Serious: Yes (Hospitalization)
  Sender: FDA-Public Use
  Company Number: JP-GENZYME-THYM-1001735

PATIENT
  Sex: Female
  Weight: 44 kg

DRUGS (12)
  1. THYMOGLOBULIN [Suspect]
     Indication: BONE MARROW CONDITIONING REGIMEN
     Dosage: 2.5 MG, ONCE
     Route: 042
     Dates: start: 20100129, end: 20100129
  2. THYMOGLOBULIN [Suspect]
     Dosage: 40 MG, QD
     Route: 042
     Dates: start: 20100129, end: 20100131
  3. CEFOZOPRAN HYDROCHLORIDE [Concomitant]
     Indication: ANTIBIOTIC PROPHYLAXIS
     Dosage: UNK
     Dates: start: 20100104, end: 20100213
  4. MEROPENEM TRIHYDRATE [Concomitant]
     Indication: ANTIBIOTIC PROPHYLAXIS
     Dosage: UNK
     Dates: start: 20100101, end: 20100309
  5. MICAFUNGIN SODIUM [Concomitant]
     Indication: ANTIFUNGAL PROPHYLAXIS
     Dosage: UNK
     Dates: start: 20100121, end: 20100309
  6. METHYLPREDNISOLONE SODIUM SUCCINATE [Concomitant]
     Indication: PREMEDICATION
     Dosage: UNK
     Dates: start: 20100129, end: 20100202
  7. PREDNISOLONE [Concomitant]
     Indication: PREMEDICATION
     Dosage: UNK
     Dates: start: 20100201, end: 20100206
  8. LENOGRASTIM [Concomitant]
     Indication: INFECTION PROPHYLAXIS
     Dosage: UNK
     Dates: start: 20100119, end: 20100121
  9. LENOGRASTIM [Concomitant]
     Dosage: UNK
     Dates: start: 20100208, end: 20100222
  10. CYCLOPHOSPHAMIDE [Concomitant]
     Indication: BONE MARROW CONDITIONING REGIMEN
     Dosage: UNK
     Dates: start: 20100122, end: 20100123
  11. TACROLIMUS [Concomitant]
     Indication: PROPHYLAXIS AGAINST GRAFT VERSUS HOST DISEASE
     Dosage: UNK
     Dates: start: 20100201, end: 20100305
  12. TOTAL BODY IRRADIATION (12GY) [Concomitant]
     Indication: BONE MARROW CONDITIONING REGIMEN
     Dosage: UNK
     Dates: start: 20100125, end: 20100128

REACTIONS (1)
  - DISEASE RECURRENCE [None]
